FAERS Safety Report 20091260 (Version 2)
Quarter: 2021Q4

REPORT INFORMATION
  Report Type: Spontaneous
  Country: US (occurrence: US)
  Receive Date: 20211119
  Receipt Date: 20211216
  Transmission Date: 20220303
  Serious: Yes (Other)
  Sender: FDA-Public Use
  Company Number: US-ORGANON-O2111USA000420

PATIENT
  Sex: Female
  Weight: 88.9 kg

DRUGS (6)
  1. NEXPLANON [Suspect]
     Active Substance: ETONOGESTREL
     Indication: Contraception
     Dosage: 1 DOSAGE FORM (LEFT ARM)
     Route: 058
     Dates: start: 20210923, end: 20211013
  2. MIRTAZAPINE [Concomitant]
     Active Substance: MIRTAZAPINE
     Dosage: ONE PO HS
     Dates: start: 20211008
  3. AMLODIPINE [Concomitant]
     Active Substance: AMLODIPINE BESYLATE
     Dosage: 1 TABLET BY MOUTH EVERY DAY
     Route: 048
     Dates: start: 20211013
  4. CHOLECALCIFEROL [Concomitant]
     Active Substance: CHOLECALCIFEROL
     Dosage: 1 CAPSULE ONCE A WEEK FOR 12 WEEKS
     Route: 048
     Dates: start: 20211011
  5. FERROUS SULFATE [Concomitant]
     Active Substance: FERROUS SULFATE
     Dosage: 1 TABLET EVERY DAY
     Route: 048
     Dates: start: 20210617
  6. PHENTERMINE [Concomitant]
     Active Substance: PHENTERMINE
     Dosage: 1 PO AM

REACTIONS (8)
  - Cellulitis [Unknown]
  - Implant site discharge [Unknown]
  - Feeling abnormal [Unknown]
  - Menstruation normal [Unknown]
  - Implant site pain [Unknown]
  - Implant site swelling [Unknown]
  - Implant site oedema [Unknown]
  - Implant site erythema [Unknown]

NARRATIVE: CASE EVENT DATE: 20210101
